FAERS Safety Report 8578612-3 (Version None)
Quarter: 2012Q3

REPORT INFORMATION
  Report Type: 
  Country: None (occurrence: None)
  Receive Date: 20120801
  Receipt Date: 20120801
  Transmission Date: 20120928
  Serious: Yes (Life-Threatening)
  Sender: FDA-Public Use
  Company Number: None

PATIENT
  Sex: Female
  Weight: 96.4 kg

DRUGS (3)
  1. GLYBURIDE [Concomitant]
  2. METFORMIN HCL [Suspect]
     Indication: TYPE 2 DIABETES MELLITUS
     Dosage: 1000MG 1 TAB BID PO
     Route: 048
  3. JANUVIA [Concomitant]

REACTIONS (5)
  - RASH [None]
  - HYPERSENSITIVITY [None]
  - DIARRHOEA [None]
  - NAUSEA [None]
  - VOMITING [None]
